FAERS Safety Report 7531004-8 (Version None)
Quarter: 2011Q2

REPORT INFORMATION
  Report Type: 
  Country: None (occurrence: None)
  Receive Date: 20110608
  Receipt Date: 20110523
  Transmission Date: 20111010
  Serious: Yes (Life-Threatening, Hospitalization, Other)
  Sender: FDA-Public Use
  Company Number: US-BAYER-201040895NA

PATIENT
  Age: 22 Year
  Sex: Female
  Weight: 86 kg

DRUGS (13)
  1. TRETINOIN [Concomitant]
     Indication: ACNE
     Dosage: UNK
     Route: 061
     Dates: start: 20060101, end: 20070101
  2. TRIAMCINOLONE [Concomitant]
     Indication: ACNE
     Dosage: UNK
     Route: 061
     Dates: start: 20050101, end: 20080101
  3. YASMIN [Suspect]
     Indication: ACNE
  4. ACCUTANE [Concomitant]
     Indication: ACNE
     Dosage: UNK
     Dates: start: 20060915
  5. CEPHALEXIN [Concomitant]
     Dosage: DAILY DOSE 2000 MG
     Route: 048
     Dates: start: 20061102, end: 20061109
  6. CLOBETASOL PROPIONATE [Concomitant]
     Dosage: 0.5 %, UNK
     Route: 061
  7. YASMIN [Suspect]
     Indication: ORAL CONTRACEPTION
     Dosage: UNK UNK, UNK
     Route: 048
     Dates: start: 20060901, end: 20061101
  8. CLINDAMYCIN [Concomitant]
     Indication: ANTIBIOTIC THERAPY
     Dosage: UNK
     Route: 061
     Dates: start: 20020101, end: 20070101
  9. AFRIN [Concomitant]
     Dosage: UNK
     Route: 045
     Dates: start: 20060918, end: 20060922
  10. METFORMIN HCL [Concomitant]
     Indication: DIABETES MELLITUS
     Dosage: UNK
     Dates: start: 20060919
  11. BETAMETHASONE [Concomitant]
     Indication: ACNE
     Dosage: UNK
     Dates: start: 20050101, end: 20070101
  12. DEBROX [Concomitant]
     Dosage: UNK
     Route: 001
     Dates: start: 20060918, end: 20060922
  13. AMOX-CLAV [Concomitant]
     Dosage: DAILY DOSE 1500 MG
     Route: 048
     Dates: start: 20060919, end: 20060926

REACTIONS (9)
  - DEEP VEIN THROMBOSIS [None]
  - FATIGUE [None]
  - TRAUMATIC LUNG INJURY [None]
  - PULMONARY INFARCTION [None]
  - PULMONARY EMBOLISM [None]
  - PAIN [None]
  - CHEST PAIN [None]
  - DYSPNOEA [None]
  - ASTHENIA [None]
